FAERS Safety Report 7610208-X (Version None)
Quarter: 2011Q3

REPORT INFORMATION
  Report Type: 
  Country: None (occurrence: None)
  Receive Date: 20110715
  Receipt Date: 20110705
  Transmission Date: 20111222
  Serious: No
  Sender: FDA-Public Use
  Company Number: US-BIOGENIDEC-2011BI025539

PATIENT
  Age: 46 Year
  Sex: Female

DRUGS (4)
  1. CYTOXAN [Concomitant]
     Indication: MULTIPLE SCLEROSIS
     Dates: start: 20020101, end: 20020101
  2. AVONEX [Suspect]
     Indication: MULTIPLE SCLEROSIS
     Route: 030
     Dates: start: 19991120, end: 20030101
  3. AVONEX [Suspect]
     Route: 030
     Dates: start: 20030101, end: 20050101
  4. SYNTHROID [Concomitant]
     Indication: HYPERTHYROIDISM
     Dates: start: 20060101

REACTIONS (2)
  - CELLULITIS [None]
  - MULTIPLE SCLEROSIS RELAPSE [None]
